FAERS Safety Report 8115773-4 (Version None)
Quarter: 2011Q4

REPORT INFORMATION
  Report Type: 
  Country: None (occurrence: None)
  Receive Date: 20111227
  Receipt Date: 20110921
  Transmission Date: 20120403
  Serious: Yes (Other)
  Sender: FDA-Public Use
  Company Number: PHHY2010US90125

PATIENT
  Age: 56 Year
  Sex: Male
  Weight: 81.6 kg

DRUGS (9)
  1. VESICARE [Concomitant]
  2. AMLODIPINE [Concomitant]
  3. LUNESTA [Concomitant]
  4. ATACAND [Concomitant]
  5. GILENYA [Suspect]
     Indication: MULTIPLE SCLEROSIS
     Dosage: 0.5 MG, DAILY, ORAL
     Route: 048
     Dates: start: 20101229
  6. ADDERALL 10 [Concomitant]
  7. BACLOFEN [Concomitant]
  8. CYCLOBENZAPRINE [Concomitant]
  9. NUVIGIL [Concomitant]

REACTIONS (2)
  - FATIGUE [None]
  - HEART RATE DECREASED [None]
